FAERS Safety Report 6262350-6 (Version None)
Quarter: 2009Q3

REPORT INFORMATION
  Report Type: 
  Country: None (occurrence: None)
  Receive Date: 20090709
  Receipt Date: 20090630
  Transmission Date: 20100115
  Serious: Yes (Hospitalization, Other)
  Sender: FDA-Public Use
  Company Number: PHHY2009JP25641

PATIENT
  Age: 59 Year
  Sex: Female

DRUGS (5)
  1. NEORAL [Suspect]
     Indication: SYSTEMIC LUPUS ERYTHEMATOSUS
     Dosage: UNK
     Dates: start: 19980101, end: 20010101
  2. NEORAL [Suspect]
     Dosage: UNK
     Dates: start: 20051201
  3. MYCOPHENOLATE MOFETIL [Suspect]
     Indication: SYSTEMIC LUPUS ERYTHEMATOSUS
     Dosage: UNK
  4. CYCLOPHOSPHAMIDE [Concomitant]
     Indication: SYSTEMIC LUPUS ERYTHEMATOSUS
     Dosage: UNK
     Route: 042
  5. ADRENAL HORMONE PREPARATIONS [Concomitant]
     Indication: SYSTEMIC LUPUS ERYTHEMATOSUS
     Dosage: UNK

REACTIONS (12)
  - ABDOMINAL PAIN [None]
  - COMPLEMENT FACTOR DECREASED [None]
  - CYTOMEGALOVIRUS ENTEROCOLITIS [None]
  - FULL BLOOD COUNT DECREASED [None]
  - HAEMODIALYSIS [None]
  - INTESTINAL RESECTION [None]
  - LARGE INTESTINE PERFORATION [None]
  - LIVER DISORDER [None]
  - MELAENA [None]
  - PROCTOSTOMY [None]
  - PROTEIN URINE PRESENT [None]
  - RENAL IMPAIRMENT [None]
